FAERS Safety Report 10191980 (Version 1)
Quarter: 2014Q2

REPORT INFORMATION
  Report Type: Spontaneous
  Country: US (occurrence: US)
  Receive Date: 20140523
  Receipt Date: 20140523
  Transmission Date: 20141212
  Serious: No
  Sender: FDA-Public Use
  Company Number: US-PFIZER INC-2014141609

PATIENT
  Age: 41 Year
  Sex: Female
  Weight: 79.37 kg

DRUGS (4)
  1. NEURONTIN [Suspect]
     Dosage: UNK
     Dates: start: 2013, end: 2013
  2. CELEBREX [Concomitant]
     Dosage: UNK
  3. NORCO [Concomitant]
     Dosage: UNK
  4. LYRICA [Concomitant]
     Dosage: UNK

REACTIONS (1)
  - Drug ineffective [Unknown]
